FAERS Safety Report 6894344-1 (Version None)
Quarter: 2010Q3

REPORT INFORMATION
  Report Type: 
  Country: None (occurrence: None)
  Receive Date: 20100802
  Receipt Date: 20100721
  Transmission Date: 20110219
  Serious: Yes (Hospitalization)
  Sender: FDA-Public Use
  Company Number: US-WYE-H16413810

PATIENT
  Sex: Female
  Weight: 77.18 kg

DRUGS (5)
  1. EFFEXOR XR [Suspect]
     Indication: DEPRESSION
     Dates: start: 19960101, end: 20021201
  2. EFFEXOR XR [Suspect]
     Dates: start: 20021201
  3. EFFEXOR XR [Suspect]
  4. EFFEXOR XR [Suspect]
  5. LAMICTAL [Concomitant]

REACTIONS (6)
  - BODY HEIGHT DECREASED [None]
  - CONDITION AGGRAVATED [None]
  - CONVULSION [None]
  - FALL [None]
  - HEAD INJURY [None]
  - UNEVALUABLE EVENT [None]
